FAERS Safety Report 4267212-1 (Version None)
Quarter: 2004Q1

REPORT INFORMATION
  Report Type: 
  Country: None (occurrence: None)
  Receive Date: 20040107
  Receipt Date: 20031222
  Transmission Date: 20041129
  Serious: Yes (Hospitalization)
  Sender: FDA-Public Use
  Company Number: 2003EU006714

PATIENT
  Age: 6 Week
  Sex: Male

DRUGS (1)
  1. PROTOPIC [Suspect]
     Dosage: 1 DF, UID/QD, TOPICAL
     Route: 061
     Dates: start: 20030927, end: 20030929

REACTIONS (7)
  - ANAEMIA [None]
  - DUODENAL ULCER [None]
  - EPISTAXIS [None]
  - HAEMATEMESIS [None]
  - MELAENA NEONATAL [None]
  - OESOPHAGITIS [None]
  - REGURGITATION OF FOOD [None]
